FAERS Safety Report 7804529-5 (Version None)
Quarter: 2011Q4

REPORT INFORMATION
  Report Type: 
  Country: None (occurrence: None)
  Receive Date: 20111010
  Receipt Date: 20111006
  Transmission Date: 20120403
  Serious: Yes (Death, Hospitalization)
  Sender: FDA-Public Use
  Company Number: PHHY2011NL78050

PATIENT
  Sex: Male

DRUGS (3)
  1. ZOMETA [Suspect]
     Dosage: 4 MG/5 ML
     Route: 042
     Dates: start: 20110726
  2. ZOMETA [Suspect]
     Indication: PROSTATE CANCER
     Dosage: 4 MG /5 ML 1X PER 21 DAYS
     Route: 042
     Dates: start: 20110524
  3. ZOMETA [Suspect]
     Dosage: 4 MG/5 ML
     Route: 042
     Dates: start: 20110817

REACTIONS (4)
  - NEOPLASM MALIGNANT [None]
  - METASTASES TO LIVER [None]
  - METASTASES TO BONE [None]
  - NEOPLASM PROGRESSION [None]
